FAERS Safety Report 11707429 (Version 3)
Quarter: 2015Q4

REPORT INFORMATION
  Report Type: Spontaneous
  Country: US (occurrence: US)
  Receive Date: 20151106
  Receipt Date: 20151221
  Transmission Date: 20160304
  Serious: Yes (Hospitalization, Other)
  Sender: FDA-Public Use
  Company Number: US-JAZZ-2015-US-018234

PATIENT
  Age: 76 Year
  Sex: Female

DRUGS (3)
  1. XYREM [Suspect]
     Active Substance: SODIUM OXYBATE
     Indication: NARCOLEPSY
     Dosage: 3.75 G, BID
     Route: 048
     Dates: start: 200210, end: 2003
  2. XYREM [Suspect]
     Active Substance: SODIUM OXYBATE
     Dosage: 3 G, TID
     Route: 048
     Dates: start: 201012
  3. XYREM [Suspect]
     Active Substance: SODIUM OXYBATE
     Indication: CATAPLEXY
     Dosage: DOSE ADJUSTMENTS
     Route: 048
     Dates: start: 2003, end: 2010

REACTIONS (5)
  - Seizure [Unknown]
  - Cervical vertebral fracture [Recovering/Resolving]
  - Fall [Recovered/Resolved]
  - Head injury [Recovering/Resolving]
  - Appendiceal abscess [Unknown]

NARRATIVE: CASE EVENT DATE: 201510
